FAERS Safety Report 6146118-7 (Version None)
Quarter: 2009Q2

REPORT INFORMATION
  Report Type: 
  Country: None (occurrence: None)
  Receive Date: 20090407
  Receipt Date: 20090330
  Transmission Date: 20091009
  Serious: Yes (Hospitalization)
  Sender: FDA-Public Use
  Company Number: JP-BAYER-200910410BYL

PATIENT
  Age: 86 Year
  Sex: Female

DRUGS (29)
  1. ADALAT CC [Suspect]
     Indication: ESSENTIAL HYPERTENSION
     Dosage: TOTAL DAILY DOSE: 40 MG  UNIT DOSE: 40 MG
     Route: 048
     Dates: start: 20061211, end: 20070625
  2. ADALAT CC [Suspect]
     Dosage: TOTAL DAILY DOSE: 80 MG  UNIT DOSE: 40 MG
     Route: 048
     Dates: start: 20070626, end: 20071118
  3. KIYOREOPIN [Suspect]
     Indication: UNEVALUABLE EVENT
     Route: 048
     Dates: start: 20070801, end: 20070913
  4. A.O.C.E [Suspect]
     Route: 065
     Dates: start: 20070801, end: 20070913
  5. ARTIST [Suspect]
     Dosage: TOTAL DAILY DOSE: 10 MG
     Route: 048
     Dates: end: 20070625
  6. DECADRON [Suspect]
     Route: 065
  7. OLMETEC [Concomitant]
     Dosage: TOTAL DAILY DOSE: 40 MG
     Route: 048
     Dates: start: 20070625
  8. OLMETEC [Concomitant]
     Dosage: TOTAL DAILY DOSE: 20 MG
     Route: 048
     Dates: start: 20050630, end: 20070624
  9. CONIEL [Concomitant]
     Dosage: TOTAL DAILY DOSE: 4 MG
     Route: 048
     Dates: start: 20050630, end: 20061210
  10. ASPIRIN [Concomitant]
     Route: 048
  11. LIPITOR [Concomitant]
     Route: 048
     Dates: start: 20060316, end: 20070625
  12. ONON [Concomitant]
     Route: 048
     Dates: end: 20070625
  13. GASMOTIN [Concomitant]
     Route: 048
     Dates: start: 20060615, end: 20070625
  14. NOVORAPID MIX [Concomitant]
     Dosage: BEFORE BREAKFAST:22 UNIT, BEFORE DINNER:16 UNIT
     Route: 058
     Dates: start: 20070205, end: 20070625
  15. NOVORAPID MIX [Concomitant]
     Dosage: BEFORE BREAKFAST:22 UNIT, BEFORE DINNER:12 UNIT
     Route: 058
     Dates: start: 20070626, end: 20070816
  16. NOVORAPID MIX [Concomitant]
     Dosage: BEFORE BREAKFAST:22 UNIT, BEFORE DINNER:14 UNIT
     Route: 058
     Dates: start: 20061113, end: 20070204
  17. NOVORAPID MIX [Concomitant]
     Dosage: BEFORE BREAKFAST:28 UNIT, BEFORE DINNER:18 UNIT
     Route: 058
     Dates: start: 20071023
  18. NOVORAPID MIX [Concomitant]
     Dosage: BEFORE BREAKFAST:26 UNIT, BEFORE DINNER:16 UNIT
     Route: 058
     Dates: start: 20070830, end: 20071022
  19. NOVORAPID MIX [Concomitant]
     Dosage: BEFORE BREAKFAST:24 UNIT, BEFORE DINNER:14 UNIT
     Route: 058
     Dates: start: 20070817, end: 20070829
  20. PRORENAL [Concomitant]
     Dosage: TOTAL DAILY DOSE: 15 ?G
     Route: 048
     Dates: start: 20070305, end: 20070401
  21. MECOBALAMIN [Concomitant]
     Dosage: TOTAL DAILY DOSE: 1500 ?G
     Route: 048
     Dates: start: 20070305, end: 20070624
  22. SIGMART [Concomitant]
     Dosage: TOTAL DAILY DOSE: 10 MG
     Route: 048
     Dates: start: 20070625
  23. SINGULAIR [Concomitant]
     Dosage: TOTAL DAILY DOSE: 10 MG
     Route: 048
     Dates: start: 20070625
  24. TAKEPRON [Concomitant]
     Dosage: TOTAL DAILY DOSE: 30 MG
     Route: 048
     Dates: start: 20070625
  25. LANIRAPID [Concomitant]
     Dosage: TOTAL DAILY DOSE: 0.05 MG
     Route: 048
     Dates: start: 20070625
  26. FUROSEMIDE [Concomitant]
     Dosage: TOTAL DAILY DOSE: 20 MG
     Route: 048
     Dates: start: 20070625
  27. ALDACTONE [Concomitant]
     Dosage: TOTAL DAILY DOSE: 25 MG
     Route: 048
     Dates: start: 20070625
  28. GASTER [Concomitant]
     Route: 048
     Dates: end: 20070625
  29. STEROID [Concomitant]
     Indication: CARPAL TUNNEL SYNDROME

REACTIONS (8)
  - ASTHMA [None]
  - BACK PAIN [None]
  - CARDIAC FAILURE CHRONIC [None]
  - DIABETES MELLITUS INADEQUATE CONTROL [None]
  - DYSPNOEA [None]
  - OEDEMA PERIPHERAL [None]
  - PULMONARY CONGESTION [None]
  - WEIGHT INCREASED [None]
